FAERS Safety Report 9405142 (Version 1)
Quarter: 2013Q3

REPORT INFORMATION
  Report Type: Spontaneous
  Country: US (occurrence: US)
  Receive Date: 20130717
  Receipt Date: 20130717
  Transmission Date: 20140515
  Serious: No
  Sender: FDA-Public Use
  Company Number: US-009507513-1307USA009123

PATIENT
  Sex: Female
  Weight: 87.98 kg

DRUGS (3)
  1. VYTORIN [Suspect]
     Indication: HYPERLIPIDAEMIA
     Dosage: 1 DF, QD (20/10)
     Route: 048
     Dates: start: 20130327, end: 20130530
  2. ZOCOR [Concomitant]
     Indication: DYSLIPIDAEMIA
     Route: 048
  3. ZOCOR [Concomitant]
     Dosage: 20 MG DAILY
     Route: 048
     Dates: start: 201306

REACTIONS (1)
  - Diarrhoea [Recovered/Resolved]
